FAERS Safety Report 16377405 (Version 2)
Quarter: 2019Q2

REPORT INFORMATION
  Report Type: Spontaneous
  Country: BJ (occurrence: BJ)
  Receive Date: 20190531
  Receipt Date: 20190611
  Transmission Date: 20190711
  Serious: Yes (Life-Threatening)
  Sender: FDA-Public Use
  Company Number: BJ-PFIZER INC-2019227773

PATIENT
  Sex: Female

DRUGS (3)
  1. MORPHINE SULFATE. [Suspect]
     Active Substance: MORPHINE SULFATE
     Indication: CAESAREAN SECTION
     Dosage: 100 UG, UNK
  2. BUPIVACAINE. [Suspect]
     Active Substance: BUPIVACAINE
     Indication: CAESAREAN SECTION
     Dosage: UNK
     Route: 037
  3. ATROPINE SULFATE. [Suspect]
     Active Substance: ATROPINE SULFATE
     Indication: CAESAREAN SECTION
     Dosage: 100 UG, UNK (100 UG ATROPINE HAD BEEN ASSOCIATED TO BUPIVACAINE AND INJECTED INTRATHECALLY INSTEAD)
     Route: 037

REACTIONS (5)
  - Product administration error [Unknown]
  - Confusional state [Recovered/Resolved]
  - Headache [Recovered/Resolved]
  - Wrong product administered [Unknown]
  - Agitation [Recovered/Resolved]
